FAERS Safety Report 10737968 (Version 4)
Quarter: 2015Q3

REPORT INFORMATION
  Report Type: Report from Study
  Country: US (occurrence: US)
  Receive Date: 20150126
  Receipt Date: 20150722
  Transmission Date: 20151125
  Serious: Yes (Other)
  Sender: FDA-Public Use
  Company Number: US-GILEAD-2015-0133728

PATIENT
  Age: 54 Year
  Sex: Male

DRUGS (1)
  1. AMBRISENTAN [Suspect]
     Active Substance: AMBRISENTAN
     Indication: PULMONARY HYPERTENSION
     Dosage: 5 MG, QD
     Route: 065
     Dates: start: 20141215, end: 20150107

REACTIONS (8)
  - Presyncope [Unknown]
  - Muscular weakness [Unknown]
  - Abdominal pain [Recovering/Resolving]
  - Paraesthesia [Unknown]
  - Nausea [Recovering/Resolving]
  - Dizziness [Unknown]
  - Malaise [Unknown]
  - Fatigue [Recovering/Resolving]
